FAERS Safety Report 7244814-1 (Version None)
Quarter: 2011Q1

REPORT INFORMATION
  Report Type: 
  Country: None (occurrence: None)
  Receive Date: 20110126
  Receipt Date: 20110120
  Transmission Date: 20110831
  Serious: Yes (Other)
  Sender: FDA-Public Use
  Company Number: CA-SHIRE-SPV1-2011-00094

PATIENT
  Age: 10 Year
  Sex: Male
  Weight: 24.943 kg

DRUGS (1)
  1. VYVANSE [Suspect]
     Indication: PRODUCT USED FOR UNKNOWN INDICATION
     Dosage: 30 MG, 1X/DAY:QD
     Route: 048

REACTIONS (8)
  - SUICIDAL IDEATION [None]
  - IRRITABILITY [None]
  - DEPRESSION [None]
  - DELUSION [None]
  - FEELING ABNORMAL [None]
  - HOMICIDAL IDEATION [None]
  - THINKING ABNORMAL [None]
  - AGGRESSION [None]
